FAERS Safety Report 11075713 (Version 3)
Quarter: 2015Q2

REPORT INFORMATION
  Report Type: Report from Study
  Country: IT (occurrence: IT)
  Receive Date: 20150429
  Receipt Date: 20150623
  Transmission Date: 20150821
  Serious: Yes (Other)
  Sender: FDA-Public Use
  Company Number: PHHY2015IT047116

PATIENT
  Age: 36 Year
  Sex: Female
  Weight: 75 kg

DRUGS (7)
  1. EUTIROX [Concomitant]
     Active Substance: LEVOTHYROXINE SODIUM
     Indication: HYPOTHYROIDISM
     Dosage: 75 UG, UNK SINCE 10 YEARS
     Route: 065
  2. GILENYA [Suspect]
     Active Substance: FINGOLIMOD HYDROCHLORIDE
     Dosage: 0.5 MG, QD
     Route: 048
     Dates: start: 20150527
  3. PROMETRIUM [Concomitant]
     Active Substance: PROGESTERONE
     Indication: PREMATURE MENOPAUSE
     Dosage: UNK
     Route: 067
     Dates: start: 20140101
  4. INTERFERON BETA-1A [Concomitant]
     Active Substance: INTERFERON BETA-1A
     Indication: MULTIPLE SCLEROSIS
     Route: 065
  5. ESTRADERM-MX [Concomitant]
     Indication: PREMATURE MENOPAUSE
     Dosage: 50 UG, UNK
     Route: 062
     Dates: start: 20140101
  6. PREGABALIN. [Concomitant]
     Active Substance: PREGABALIN
     Indication: MULTIPLE SCLEROSIS
     Route: 065
  7. GILENYA [Suspect]
     Active Substance: FINGOLIMOD HYDROCHLORIDE
     Indication: RELAPSING-REMITTING MULTIPLE SCLEROSIS
     Dosage: 0.5 MG, QD
     Route: 048
     Dates: start: 20150128, end: 20150225

REACTIONS (3)
  - Chest discomfort [Recovered/Resolved]
  - Wheezing [Recovering/Resolving]
  - Dyspnoea [Recovered/Resolved]

NARRATIVE: CASE EVENT DATE: 20150130
